FAERS Safety Report 5748225-7 (Version None)
Quarter: 2008Q2

REPORT INFORMATION
  Report Type: 
  Country: None (occurrence: None)
  Receive Date: 20080523
  Receipt Date: 20080512
  Transmission Date: 20081010
  Serious: Yes (Hospitalization)
  Sender: FDA-Public Use
  Company Number: US-PFIZER INC-2005158665

PATIENT
  Sex: Male
  Weight: 108 kg

DRUGS (8)
  1. SUTENT [Suspect]
     Indication: RENAL CELL CARCINOMA
     Route: 048
  2. ACTOS [Concomitant]
     Route: 048
  3. GLYBURIDE [Concomitant]
     Route: 048
  4. ZANTAC [Concomitant]
     Route: 048
  5. ZOCOR [Concomitant]
     Route: 048
  6. PROVENTIL GENTLEHALER [Concomitant]
     Route: 055
  7. ADVIL [Concomitant]
     Route: 048
  8. ZOMETA [Concomitant]
     Route: 042

REACTIONS (1)
  - DIVERTICULITIS [None]
